FAERS Safety Report 7161080-6 (Version None)
Quarter: 2010Q4

REPORT INFORMATION
  Report Type: 
  Country: None (occurrence: None)
  Receive Date: 20101215
  Receipt Date: 20101206
  Transmission Date: 20110411
  Serious: Yes (Hospitalization, Congenital Anomaly)
  Sender: FDA-Public Use
  Company Number: US-BIOGENIDEC-2010BI038520

PATIENT
  Age: 1 Month
  Sex: Male
  Weight: 2 kg

DRUGS (3)
  1. TYSABRI [Suspect]
     Indication: DRUG EXPOSURE DURING PREGNANCY
     Route: 064
     Dates: start: 20090127, end: 20100125
  2. POLY-VI-SOL [Concomitant]
  3. HEPATITIS B VACCINE [Concomitant]
     Dates: start: 20100925, end: 20100925

REACTIONS (6)
  - BREECH PRESENTATION [None]
  - CAESAREAN SECTION [None]
  - CONGENITAL MEGACOLON [None]
  - CYANOSIS [None]
  - PREMATURE BABY [None]
  - SINUS BRADYCARDIA [None]
